FAERS Safety Report 8218696-5 (Version None)
Quarter: 2012Q1

REPORT INFORMATION
  Report Type: 
  Country: None (occurrence: None)
  Receive Date: 20120319
  Receipt Date: 20120312
  Transmission Date: 20120608
  Serious: Yes (Hospitalization)
  Sender: FDA-Public Use
  Company Number: PHEH2012US002503

PATIENT
  Sex: Female

DRUGS (1)
  1. COMBIPATCH [Suspect]
     Route: 062

REACTIONS (3)
  - MALAISE [None]
  - HOT FLUSH [None]
  - CHEST DISCOMFORT [None]
